FAERS Safety Report 8343564 (Version 2)
Quarter: 2013Q1

REPORT INFORMATION
  Report Type: Spontaneous
  Country: US (occurrence: None)
  Receive Date: 20120111
  Receipt Date: 20130215
  Transmission Date: 20140127
  Serious: Yes (Hospitalization)
  Sender: FDA-Public Use
  Company Number: MPS1-1000622

PATIENT
  Age: 19 Year
  Sex: Male
  Weight: 37.4 kg

DRUGS (7)
  1. ALDURAZYME [Suspect]
     Route: 042
     Dates: start: 20060713
  2. TYLENOL (PARACETAMOL) [Concomitant]
  3. SENNA [Concomitant]
  4. ADVAIR HFA [Concomitant]
  5. FLONASE [Concomitant]
  6. ALBUTEROL (SALBUTAMOL) [Concomitant]
  7. VENTOLIN [Concomitant]

REACTIONS (3)
  - OTORRHOEA [None]
  - PNEUMONIA [None]
  - STATUS ASTHMATICUS [None]
